FAERS Safety Report 20759029 (Version 5)
Quarter: 2022Q3

REPORT INFORMATION
  Report Type: Report from Study
  Country: PL (occurrence: PL)
  Receive Date: 20220427
  Receipt Date: 20220825
  Transmission Date: 20221027
  Serious: Yes (Hospitalization, Other)
  Sender: FDA-Public Use
  Company Number: PL-EXELIXIS-XL18422050780

PATIENT
  Age: 61 Year
  Sex: Male
  Weight: 77 kg

DRUGS (23)
  1. CABOZANTINIB [Suspect]
     Active Substance: CABOZANTINIB
     Indication: Medullary thyroid cancer
     Dosage: 140 MG, QD
     Route: 048
     Dates: start: 20181206
  2. CABOZANTINIB [Suspect]
     Active Substance: CABOZANTINIB
     Dosage: 100 MG, QD
     Route: 048
     Dates: start: 20190227
  3. CABOZANTINIB [Suspect]
     Active Substance: CABOZANTINIB
     Dosage: 60 MG, QD
     Route: 048
     Dates: start: 20190524, end: 20220406
  4. CABOZANTINIB [Suspect]
     Active Substance: CABOZANTINIB
     Dosage: 60 MG, QD
     Route: 048
     Dates: start: 20220420
  5. EUTHYROX [Concomitant]
     Active Substance: LEVOTHYROXINE SODIUM
  6. NEBIVOLOL HYDROCHLORIDE [Concomitant]
     Active Substance: NEBIVOLOL HYDROCHLORIDE
  7. RAMIPRIL [Concomitant]
     Active Substance: RAMIPRIL
  8. Tulip [Concomitant]
  9. METFORMIN HYDROCHLORIDE [Concomitant]
     Active Substance: METFORMIN HYDROCHLORIDE
  10. POTASSIUM CHLORIDE [Concomitant]
     Active Substance: POTASSIUM CHLORIDE
  11. OMEPRAZOLE SODIUM [Concomitant]
     Active Substance: OMEPRAZOLE SODIUM
  12. GENSULIN [Concomitant]
  13. PROSTAMNIC [Concomitant]
  14. Silamil [Concomitant]
  15. Ketonal [Concomitant]
  16. PREGABALIN [Concomitant]
     Active Substance: PREGABALIN
  17. KOLONBIOTIC [Concomitant]
  18. MAGNE B6 [Concomitant]
     Active Substance: MAGNESIUM\PYRIDOXINE
  19. ATROPINE SULFATE\DIPHENOXYLATE HYDROCHLORIDE [Concomitant]
     Active Substance: ATROPINE SULFATE\DIPHENOXYLATE HYDROCHLORIDE
  20. MEGACE [Concomitant]
     Active Substance: MEGESTROL ACETATE
  21. RINOPANTEINA [Concomitant]
  22. CAPTOPRIL [Concomitant]
     Active Substance: CAPTOPRIL
  23. CHLORHEXIDINE GLUCONATE [Concomitant]
     Active Substance: CHLORHEXIDINE GLUCONATE

REACTIONS (1)
  - Adrenal insufficiency [Not Recovered/Not Resolved]

NARRATIVE: CASE EVENT DATE: 20220405
